FAERS Safety Report 11340147 (Version 1)
Quarter: 2015Q3

REPORT INFORMATION
  Report Type: Spontaneous
  Country: US (occurrence: None)
  Receive Date: 20150803
  Receipt Date: 20150803
  Transmission Date: 20151125
  Serious: Yes (Other)
  Sender: FDA-Public Use
  Company Number: None

PATIENT
  Age: 40 Year
  Sex: Female
  Weight: 110 kg

DRUGS (1)
  1. XOLAIR [Suspect]
     Active Substance: OMALIZUMAB
     Indication: ASTHMA
     Dosage: Q2W
     Route: 058
     Dates: start: 20130808

REACTIONS (5)
  - Headache [None]
  - Photosensitivity reaction [None]
  - Nausea [None]
  - Blood pressure increased [None]
  - Vomiting [None]

NARRATIVE: CASE EVENT DATE: 20150622
